FAERS Safety Report 23286401 (Version 1)
Quarter: 2023Q4

REPORT INFORMATION
  Report Type: Spontaneous
  Country: None (occurrence: CN)
  Receive Date: 20231212
  Receipt Date: 20231212
  Transmission Date: 20240109
  Serious: Yes (Hospitalization, Other)
  Sender: FDA-Public Use
  Company Number: CN-Jiangsu Hansoh Pharmaceutical Co., Ltd-2149241

PATIENT
  Age: 59 Year
  Sex: Female

DRUGS (1)
  1. VINORELBINE [Suspect]
     Active Substance: VINORELBINE TARTRATE
     Indication: Breast cancer
     Route: 041
     Dates: start: 20231031, end: 20231031

REACTIONS (2)
  - Renal impairment [Not Recovered/Not Resolved]
  - Hepatic function abnormal [None]

NARRATIVE: CASE EVENT DATE: 20231123
